FAERS Safety Report 10040004 (Version 2)
Quarter: 2014Q4

REPORT INFORMATION
  Report Type: Spontaneous
  Country: NO (occurrence: NO)
  Receive Date: 20140326
  Receipt Date: 20141029
  Transmission Date: 20150528
  Serious: Yes (Hospitalization, Other)
  Sender: FDA-Public Use
  Company Number: NO-009507513-1403NOR009049

PATIENT
  Age: 63 Year
  Sex: Male

DRUGS (11)
  1. CETIRIZIN [Concomitant]
     Dosage: UNK
  2. ALBYL-E [Concomitant]
     Active Substance: ASPIRIN\MAGNESIUM OXIDE
     Dosage: TOTAL DAILY DOSE(SPECIFY UNITS) 75MG?1
  3. FLUTIDE [Concomitant]
     Active Substance: FLUTICASONE PROPIONATE
     Dosage: TOTAL DAILY DOSE(SPECIFY UNITS) 50 MICROGRAM/DOSE
  4. EZETROL [Suspect]
     Active Substance: EZETIMIBE
     Indication: PRODUCT USED FOR UNKNOWN INDICATION
     Dosage: 10 MG, UNK
     Route: 048
     Dates: start: 201307, end: 201310
  5. METOPROLOL [Concomitant]
     Active Substance: METOPROLOL
  6. RAMIPRIL. [Concomitant]
     Active Substance: RAMIPRIL
     Dosage: TOTAL DAILY DOSE(SPECIFY UNITS)  5MG?1
  7. SIMVASTATINE BLUEFISH [Interacting]
     Active Substance: SIMVASTATIN
     Indication: PRODUCT USED FOR UNKNOWN INDICATION
     Dosage: 80 MG, UNK
     Route: 048
     Dates: start: 201207, end: 201310
  8. MAREVAN [Concomitant]
     Active Substance: WARFARIN SODIUM
     Indication: CARDIAC VENTRICULAR THROMBOSIS
     Dosage: UNK
  9. AMOXICILLIN. [Interacting]
     Active Substance: AMOXICILLIN
     Indication: INFECTION
     Dosage: UNK
     Dates: start: 20130621
  10. ERYMAX [Interacting]
     Active Substance: ERYTHROMYCIN
     Indication: INFECTION
     Dosage: UNK
     Dates: start: 20130826, end: 20130828
  11. FURIX [Concomitant]
     Active Substance: FUROSEMIDE
     Dosage: TOTAL DAILY DOSE(SPECIFY UNITS)  20MG?1

REACTIONS (20)
  - Pleural effusion [Recovered/Resolved]
  - Lung infiltration [Recovered/Resolved]
  - C-reactive protein increased [Recovered/Resolved]
  - Weight decreased [Unknown]
  - Rhabdomyolysis [Recovered/Resolved]
  - Blood creatine phosphokinase increased [Recovered/Resolved]
  - Rhabdomyolysis [Recovering/Resolving]
  - Drug level increased [Unknown]
  - Drug interaction [Unknown]
  - Gait disturbance [Unknown]
  - Medication error [Unknown]
  - Pericardial effusion [Recovered/Resolved]
  - Respiratory tract infection [Unknown]
  - Pneumonia [Recovered/Resolved]
  - Paralysis [Unknown]
  - Dyspnoea [Recovered/Resolved]
  - Overdose [Unknown]
  - Cardioversion [Unknown]
  - Atrial fibrillation [Recovered/Resolved]
  - Productive cough [Recovered/Resolved]

NARRATIVE: CASE EVENT DATE: 2013
